FAERS Safety Report 9679350 (Version 1)
Quarter: 2013Q4

REPORT INFORMATION
  Report Type: Spontaneous
  Country: US (occurrence: US)
  Receive Date: 20131109
  Receipt Date: 20131109
  Transmission Date: 20140711
  Serious: No
  Sender: FDA-Public Use
  Company Number: US-SANOFI-AVENTIS-2013SA017621

PATIENT
  Age: 58 Year
  Sex: Male

DRUGS (1)
  1. ALLEGRA-D, 24 HR [Suspect]
     Indication: MIDDLE EAR EFFUSION
     Dosage: 180MG/240MG ONCE DAILY
     Route: 048
     Dates: start: 20130218

REACTIONS (3)
  - Unevaluable event [Unknown]
  - Middle ear effusion [Unknown]
  - Extra dose administered [Unknown]
